FAERS Safety Report 5625927-4 (Version None)
Quarter: 2008Q1

REPORT INFORMATION
  Report Type: 
  Country: None (occurrence: None)
  Receive Date: 20080211
  Receipt Date: 20080201
  Transmission Date: 20080703
  Serious: Yes (Other)
  Sender: FDA-Public Use
  Company Number: 8023420

PATIENT
  Age: 35 Year
  Sex: Female

DRUGS (1)
  1. XUSAL [Suspect]
     Indication: URTICARIA
     Dosage: 1 DF/D PO
     Route: 048

REACTIONS (2)
  - ABORTION INDUCED [None]
  - DRUG EXPOSURE DURING PREGNANCY [None]
